FAERS Safety Report 21272104 (Version 2)
Quarter: 2022Q3

REPORT INFORMATION
  Report Type: Spontaneous
  Country: US (occurrence: US)
  Receive Date: 20220830
  Receipt Date: 20220902
  Transmission Date: 20221027
  Serious: Yes (Death, Other)
  Sender: FDA-Public Use
  Company Number: US-KARYOPHARM-2022KPT000911

PATIENT

DRUGS (17)
  1. XPOVIO [Suspect]
     Active Substance: SELINEXOR
     Indication: Plasma cell myeloma
     Dosage: 100 MG, WEEKLY
     Route: 048
     Dates: start: 20220721, end: 20220804
  2. ALPRAZOLAM [Concomitant]
     Active Substance: ALPRAZOLAM
  3. DEXAMETHASONE [Concomitant]
     Active Substance: DEXAMETHASONE
  4. ATORVASTATIN [Concomitant]
     Active Substance: ATORVASTATIN
  5. DARATUMUMAB [Concomitant]
     Active Substance: DARATUMUMAB
  6. DENOSUMAB [Concomitant]
     Active Substance: DENOSUMAB
  7. MONTELUKAST [Concomitant]
     Active Substance: MONTELUKAST SODIUM
  8. NORCO [Concomitant]
     Active Substance: ACETAMINOPHEN\HYDROCODONE BITARTRATE
  9. PANTOPRAZOLE [Concomitant]
     Active Substance: PANTOPRAZOLE
  10. SEVELAMER [Concomitant]
     Active Substance: SEVELAMER
  11. ZOFRAN [Concomitant]
     Active Substance: ONDANSETRON HYDROCHLORIDE
  12. BENZONATATE [Concomitant]
     Active Substance: BENZONATATE
  13. MIDODRINE [Concomitant]
     Active Substance: MIDODRINE
  14. CETIRIZINE [Concomitant]
     Active Substance: CETIRIZINE HYDROCHLORIDE
  15. FAMOTIDINE [Concomitant]
     Active Substance: FAMOTIDINE
  16. HEPARIN LOCK FLUSH [Concomitant]
     Active Substance: HEPARIN SODIUM
  17. LIDOCAINE [Concomitant]
     Active Substance: LIDOCAINE

REACTIONS (4)
  - Death [Fatal]
  - Blood gases abnormal [Unknown]
  - Thrombosis in device [Unknown]
  - Platelet count decreased [Not Recovered/Not Resolved]

NARRATIVE: CASE EVENT DATE: 20220101
